FAERS Safety Report 15628570 (Version 1)
Quarter: 2018Q4

REPORT INFORMATION
  Report Type: Spontaneous
  Country: ES (occurrence: ES)
  Receive Date: 20181116
  Receipt Date: 20181116
  Transmission Date: 20190205
  Serious: Yes (Life-Threatening, Hospitalization)
  Sender: FDA-Public Use
  Company Number: ES-LPDUSPRD-20182166

PATIENT
  Age: 59 Year
  Sex: Female

DRUGS (3)
  1. FERINJECT [Suspect]
     Active Substance: FERRIC CARBOXYMALTOSE
     Dosage: 500 MG , 1 TOTAL
     Route: 042
     Dates: start: 20180619, end: 20180619
  2. PENTASA [Concomitant]
     Active Substance: MESALAMINE
     Dosage: 30 ENVELOPES (4 GM, 1D)
     Route: 048
     Dates: start: 2009, end: 20180619
  3. OMEPRAZOL [Concomitant]
     Active Substance: OMEPRAZOLE
     Dosage: 20 MG, 1 D
     Route: 048
     Dates: start: 20171027, end: 20180619

REACTIONS (2)
  - Chest pain [Unknown]
  - Infusion related reaction [Unknown]

NARRATIVE: CASE EVENT DATE: 20180619
